FAERS Safety Report 7974548-7 (Version None)
Quarter: 2011Q4

REPORT INFORMATION
  Report Type: 
  Country: None (occurrence: None)
  Receive Date: 20111213
  Receipt Date: 20111202
  Transmission Date: 20120403
  Serious: Yes (Other)
  Sender: FDA-Public Use
  Company Number: US-JNJFOC-20111202037

PATIENT
  Sex: Female

DRUGS (1)
  1. REMICADE [Suspect]
     Indication: CROHN'S DISEASE
     Route: 042
     Dates: start: 20090101

REACTIONS (4)
  - GENERAL PHYSICAL HEALTH DETERIORATION [None]
  - PRODUCT QUALITY ISSUE [None]
  - ANGIOTENSIN CONVERTING ENZYME INCREASED [None]
  - WEIGHT DECREASED [None]
